FAERS Safety Report 6525119-0 (Version None)
Quarter: 2010Q1

REPORT INFORMATION
  Report Type: 
  Country: None (occurrence: None)
  Receive Date: 20100104
  Receipt Date: 20091228
  Transmission Date: 20100710
  Serious: Yes (Death, Other)
  Sender: FDA-Public Use
  Company Number: US-ROCHE-676975

PATIENT

DRUGS (5)
  1. BEVACIZUMAB [Suspect]
     Dosage: BETWEEN 23 JUNE 2005 AND 21 MARCH 2007 ROUTE: INTRAOCULAR
     Route: 050
  2. BEVACIZUMAB [Suspect]
     Dosage: ROUTE: INTRAVITREAL
     Route: 050
  3. ASPIRIN [Concomitant]
  4. WARFARIN [Concomitant]
  5. RANIBIZUMAB [Concomitant]

REACTIONS (7)
  - CEREBROVASCULAR ACCIDENT [None]
  - DEATH [None]
  - DEEP VEIN THROMBOSIS [None]
  - HAEMORRHAGE [None]
  - HYPERTENSION [None]
  - MYOCARDIAL INFARCTION [None]
  - RENAL ARTERY THROMBOSIS [None]
